FAERS Safety Report 24812578 (Version 1)
Quarter: 2025Q1

REPORT INFORMATION
  Report Type: Report from Study
  Country: US (occurrence: US)
  Receive Date: 20250107
  Receipt Date: 20250107
  Transmission Date: 20250409
  Serious: Yes (Hospitalization)
  Sender: ABBVIE
  Company Number: US-ABBVIE-6047958

PATIENT
  Age: 66 Year
  Sex: Male

DRUGS (2)
  1. SKYRIZI [Suspect]
     Active Substance: RISANKIZUMAB-RZAA
     Indication: Eczema
     Route: 058
     Dates: start: 2023
  2. SKYRIZI [Suspect]
     Active Substance: RISANKIZUMAB-RZAA
     Indication: Psoriasis
     Dosage: STOP DATE TEXT: SEP 2024 OR OCT 2024?FORM STRENGTH: 150 MG
     Route: 058

REACTIONS (12)
  - Renal failure [Recovering/Resolving]
  - Diabetes mellitus [Recovering/Resolving]
  - Hospitalisation [Unknown]
  - Asthenia [Recovering/Resolving]
  - Dysphagia [Recovering/Resolving]
  - Ulcer haemorrhage [Recovering/Resolving]
  - Nephrolithiasis [Recovering/Resolving]
  - Pneumonia [Recovering/Resolving]
  - Dyspnoea [Recovering/Resolving]
  - Pulmonary hypertension [Recovering/Resolving]
  - Grip strength decreased [Unknown]
  - Dysstasia [Unknown]

NARRATIVE: CASE EVENT DATE: 20241201
